FAERS Safety Report 22964838 (Version 9)
Quarter: 2024Q1

REPORT INFORMATION
  Report Type: Spontaneous
  Country: US (occurrence: US)
  Receive Date: 20230921
  Receipt Date: 20240207
  Transmission Date: 20240410
  Serious: No
  Sender: FDA-Public Use
  Company Number: US-PFIZER INC-PV202300150302

PATIENT
  Age: 10 Year
  Sex: Female

DRUGS (2)
  1. GENOTROPIN [Suspect]
     Active Substance: SOMATROPIN
     Dosage: 3.4 MG, DAILY
     Dates: start: 2023
  2. GENOTROPIN [Suspect]
     Active Substance: SOMATROPIN
     Dosage: 3.3 MG (6 DAYS A WEEK)

REACTIONS (7)
  - Drug dose omission by device [Unknown]
  - Device use error [Unknown]
  - Device difficult to use [Unknown]
  - Product prescribing error [Unknown]
  - Device delivery system issue [Unknown]
  - Device breakage [Unknown]
  - Device leakage [Unknown]
